FAERS Safety Report 10178180 (Version 1)
Quarter: 2014Q2

REPORT INFORMATION
  Report Type: Spontaneous
  Country: US (occurrence: US)
  Receive Date: 20140519
  Receipt Date: 20140519
  Transmission Date: 20141212
  Serious: No
  Sender: FDA-Public Use
  Company Number: US-009507513-1404GBR015163

PATIENT
  Sex: Female
  Weight: 86.17 kg

DRUGS (1)
  1. PRINIVIL [Suspect]
     Route: 048

REACTIONS (1)
  - Drug hypersensitivity [Unknown]
